FAERS Safety Report 4997716-5 (Version None)
Quarter: 2006Q1

REPORT INFORMATION
  Report Type: 
  Country: None (occurrence: None)
  Receive Date: 20060315
  Receipt Date: 20060123
  Transmission Date: 20060701
  Serious: Yes (Other)
  Sender: FDA-Public Use
  Company Number: 433839

PATIENT
  Sex: Female

DRUGS (5)
  1. BONIVA [Suspect]
     Dosage: ORAL
     Route: 048
     Dates: start: 20060120
  2. COUMADIN [Concomitant]
  3. DILANTIN [Concomitant]
  4. CRESTOR [Concomitant]
  5. PRILOSEC [Concomitant]

REACTIONS (1)
  - GASTROOESOPHAGEAL REFLUX DISEASE [None]
